FAERS Safety Report 25751030 (Version 1)
Quarter: 2025Q3

REPORT INFORMATION
  Report Type: Report from Study
  Country: AR (occurrence: AR)
  Receive Date: 20250902
  Receipt Date: 20250902
  Transmission Date: 20251020
  Serious: Yes (Other)
  Sender: NOVARTIS
  Company Number: AR-002147023-NVSC2025AR115273

PATIENT
  Age: 70 Year
  Sex: Female

DRUGS (9)
  1. PIQRAY [Suspect]
     Active Substance: ALPELISIB
     Indication: Breast cancer metastatic
     Dosage: 2 DOSAGE FORM, (2 CAPSULES OF 150MG (300 MG)) QD
     Route: 048
     Dates: start: 20220718, end: 202309
  2. PIQRAY [Suspect]
     Active Substance: ALPELISIB
     Route: 065
     Dates: end: 202412
  3. PIQRAY [Suspect]
     Active Substance: ALPELISIB
     Route: 065
     Dates: end: 202506
  4. PIQRAY [Suspect]
     Active Substance: ALPELISIB
     Route: 065
     Dates: end: 20250501
  5. FULVESTRANT [Suspect]
     Active Substance: FULVESTRANT
     Indication: Breast cancer metastatic
     Route: 065
     Dates: start: 20220718, end: 202309
  6. FULVESTRANT [Suspect]
     Active Substance: FULVESTRANT
     Route: 065
     Dates: end: 202412
  7. FULVESTRANT [Suspect]
     Active Substance: FULVESTRANT
     Route: 065
     Dates: end: 202506
  8. FULVESTRANT [Suspect]
     Active Substance: FULVESTRANT
     Route: 065
     Dates: end: 20250501
  9. LEVOTHYROXINE [Concomitant]
     Active Substance: LEVOTHYROXINE
     Indication: Product used for unknown indication
     Route: 065

REACTIONS (7)
  - Skin ulcer [Recovering/Resolving]
  - Localised infection [Unknown]
  - Hepatic neoplasm [Unknown]
  - Condition aggravated [Unknown]
  - Limb injury [Unknown]
  - Impaired healing [Unknown]
  - Urinary tract infection [Unknown]

NARRATIVE: CASE EVENT DATE: 20240401
